FAERS Safety Report 5262691-5 (Version None)
Quarter: 2007Q1

REPORT INFORMATION
  Report Type: 
  Country: None (occurrence: None)
  Receive Date: 20070312
  Receipt Date: 20070301
  Transmission Date: 20070707
  Serious: Yes (Other)
  Sender: FDA-Public Use
  Company Number: 2007CG00363

PATIENT
  Age: 66 Year
  Sex: Female

DRUGS (2)
  1. ARIMIDEX [Suspect]
     Indication: BREAST CANCER FEMALE
     Route: 048
     Dates: start: 20061113, end: 20061221
  2. FEMARA [Concomitant]
     Indication: BREAST CANCER FEMALE
     Dates: start: 20070111

REACTIONS (2)
  - ARTHRALGIA [None]
  - OSTEONECROSIS [None]
